FAERS Safety Report 5233880-0 (Version None)
Quarter: 2007Q1

REPORT INFORMATION
  Report Type: 
  Country: None (occurrence: None)
  Receive Date: 20070208
  Receipt Date: 20070125
  Transmission Date: 20070707
  Serious: Yes (Death)
  Sender: FDA-Public Use
  Company Number: KR-PFIZER INC-2007002759

PATIENT
  Sex: Male
  Weight: 65 kg

DRUGS (2)
  1. ZYVOX [Suspect]
     Indication: ENTEROCOCCAL INFECTION
     Route: 042
     Dates: start: 20051215, end: 20051220
  2. MEROPENEM [Concomitant]
     Dosage: DAILY DOSE:2GRAM
     Route: 042
     Dates: start: 20051213, end: 20051220

REACTIONS (2)
  - MULTI-ORGAN FAILURE [None]
  - SEPSIS [None]
